FAERS Safety Report 16382190 (Version 1)
Quarter: 2019Q2

REPORT INFORMATION
  Report Type: Spontaneous
  Country: GB (occurrence: GB)
  Receive Date: 20190603
  Receipt Date: 20190603
  Transmission Date: 20190711
  Serious: Yes (Death)
  Sender: FDA-Public Use
  Company Number: GB-ACCORD-130089

PATIENT
  Age: 55 Year
  Sex: Female

DRUGS (8)
  1. LORAZEPAM. [Suspect]
     Active Substance: LORAZEPAM
     Indication: AGITATION
     Dosage: ONE DOSE TAKEN
     Route: 048
     Dates: start: 20180415
  2. ZOPICLONE [Suspect]
     Active Substance: ZOPICLONE
     Indication: INSOMNIA
     Dosage: ONCE AT NIGHT AS NEEDED - ONE DOSE ONLY
     Route: 048
     Dates: end: 20180415
  3. AMOXICILLIN SODIUM/CLAVULANATE POTASSIUM [Concomitant]
  4. PROMETHAZINE [Suspect]
     Active Substance: PROMETHAZINE\PROMETHAZINE HYDROCHLORIDE
     Indication: AGITATION
     Dosage: 25-50MG AS NEEDED UP TO TWICE DAILY. TOOK ONE DOSE ONLY.
     Route: 048
     Dates: start: 20180415
  5. COCODAMOL [Suspect]
     Active Substance: ACETAMINOPHEN\CODEINE PHOSPHATE
     Indication: ANALGESIC THERAPY
     Dosage: DOSAGE TEXT: 2 X 30/500 FOUR TIMES DAILY AS NEEDED
     Route: 048
     Dates: start: 20180415
  6. QUETIAPINE. [Suspect]
     Active Substance: QUETIAPINE
     Indication: BIPOLAR DISORDER
     Dosage: DOSAGE TEXT: AT NIGHT
     Route: 048
  7. VENLAFAXINE/VENLAFAXINE HYDROCHLORIDE [Suspect]
     Active Substance: VENLAFAXINE HYDROCHLORIDE
     Indication: BIPOLAR I DISORDER
     Dosage: DOSAGE TEXT: AT NIGHT
     Route: 048
  8. HALOPERIDOL. [Suspect]
     Active Substance: HALOPERIDOL
     Indication: PSYCHOMOTOR HYPERACTIVITY
     Dosage: RECEIVED ONE DOSE ONLY
     Route: 048
     Dates: start: 20180415, end: 20180415

REACTIONS (2)
  - Off label use [Unknown]
  - Arrhythmia [Fatal]

NARRATIVE: CASE EVENT DATE: 20180416
